FAERS Safety Report 6367479-X (Version None)
Quarter: 2009Q3

REPORT INFORMATION
  Report Type: 
  Country: None (occurrence: None)
  Receive Date: 20090921
  Receipt Date: 20090910
  Transmission Date: 20100115
  Serious: Yes (Hospitalization)
  Sender: FDA-Public Use
  Company Number: FR-GILEAD-2009-0021996

PATIENT
  Age: 45 Year
  Sex: Male
  Weight: 85 kg

DRUGS (3)
  1. TRUVADA [Suspect]
     Indication: HIV INFECTION
     Dates: start: 20090305, end: 20090320
  2. PREZISTA [Concomitant]
     Indication: HIV INFECTION
     Dates: start: 20090305, end: 20090320
  3. NORVIR [Concomitant]
     Indication: HIV INFECTION
     Dates: start: 20090305, end: 20090320

REACTIONS (2)
  - NEPHROPATHY [None]
  - RENAL FAILURE [None]
